FAERS Safety Report 13210462 (Version 1)
Quarter: 2017Q1

REPORT INFORMATION
  Report Type: Spontaneous
  Country: US (occurrence: US)
  Receive Date: 20170210
  Receipt Date: 20170210
  Transmission Date: 20170428
  Serious: Yes (Death)
  Sender: FDA-Public Use
  Company Number: US-ASTELLAS-2016US045145

PATIENT
  Age: 85 Year
  Sex: Male

DRUGS (1)
  1. XTANDI [Suspect]
     Active Substance: ENZALUTAMIDE
     Indication: PROSTATE CANCER
     Route: 048
     Dates: start: 20161021

REACTIONS (5)
  - Contusion [Unknown]
  - Asthenia [Recovering/Resolving]
  - Lethargy [Unknown]
  - Death [Fatal]
  - Fatigue [Recovering/Resolving]

NARRATIVE: CASE EVENT DATE: 20170127
